FAERS Safety Report 5738167-5 (Version None)
Quarter: 2008Q2

REPORT INFORMATION
  Report Type: 
  Country: None (occurrence: None)
  Receive Date: 20080514
  Receipt Date: 20080504
  Transmission Date: 20081010
  Serious: Yes (Other)
  Sender: FDA-Public Use
  Company Number: US-PFIZER INC-2008039163

PATIENT
  Sex: Female
  Weight: 81.363 kg

DRUGS (7)
  1. CHANTIX [Suspect]
     Indication: SMOKING CESSATION THERAPY
  2. XANAX [Concomitant]
  3. LAMICTAL [Concomitant]
  4. PREMARIN [Concomitant]
  5. REQUIP [Concomitant]
  6. TRAMADOL HCL [Concomitant]
     Indication: PAIN
  7. TIZANIDINE HCL [Concomitant]

REACTIONS (6)
  - ANXIETY [None]
  - DISTURBANCE IN ATTENTION [None]
  - DIZZINESS [None]
  - FEELING JITTERY [None]
  - SLEEP DISORDER [None]
  - VOMITING [None]
